FAERS Safety Report 8960875 (Version 1)
Quarter: 2012Q4

REPORT INFORMATION
  Report Type: Spontaneous
  Country: US (occurrence: None)
  Receive Date: 20121211
  Receipt Date: 20121211
  Transmission Date: 20130627
  Serious: Yes (Hospitalization)
  Sender: FDA-Public Use
  Company Number: None

PATIENT
  Age: 69 Year
  Weight: 51.6 kg

DRUGS (3)
  1. TEMOZOLOMIDE [Suspect]
     Indication: RECTAL CANCER METASTATIC
     Dosage: 10/29 x 5d, 11/26 x5d
220mg x 5days q 4 weeks
  2. METHOXYAMINE [Suspect]
     Dosage: 10/29 + 11/26
44mg on dl of each cycle
  3. HYDROCHROTHIAZIDE 25 MG PO QD [Concomitant]

REACTIONS (3)
  - Convulsion [None]
  - Intracranial pressure increased [None]
  - Brain oedema [None]
